FAERS Safety Report 20797847 (Version 1)
Quarter: 2022Q2

REPORT INFORMATION
  Report Type: Spontaneous
  Country: US (occurrence: None)
  Receive Date: 20220506
  Receipt Date: 20220506
  Transmission Date: 20220721
  Serious: No
  Sender: FDA-Public Use
  Company Number: None

PATIENT
  Sex: Male

DRUGS (2)
  1. SODIUM CHLORIDE [Suspect]
     Active Substance: SODIUM CHLORIDE
     Indication: Factor VIII deficiency
     Dosage: DOSE: FREQUENCY: BEFORE AND AFTER INFUSION
     Dates: start: 20220422
  2. KOVALTRY [Suspect]
     Active Substance: ANTIHEMOPHILIC FACTOR, HUMAN RECOMBINANT
     Indication: Factor VIII deficiency
     Dosage: DOSE: KOVALTRY DIRECTIONS: TWICE DAILY FOR 7 DAYS, THEN DAILY FOR 7 DAYS
     Route: 042
     Dates: start: 20220422

REACTIONS (2)
  - Incorrect dose administered [None]
  - Product preparation error [None]
